FAERS Safety Report 7358151-8 (Version None)
Quarter: 2011Q1

REPORT INFORMATION
  Report Type: 
  Country: None (occurrence: None)
  Receive Date: 20110317
  Receipt Date: 20110308
  Transmission Date: 20110831
  Serious: Yes (Other)
  Sender: FDA-Public Use
  Company Number: US-ELI_LILLY_AND_COMPANY-US201103003207

PATIENT
  Age: 56 Year
  Sex: Male

DRUGS (2)
  1. CARVEDILOL [Concomitant]
     Dosage: 6.25 MG, UNK
  2. EFFIENT [Suspect]
     Indication: STENT PLACEMENT
     Dosage: 10 MG, UNK
     Dates: start: 20101210

REACTIONS (1)
  - CORONARY ARTERY OCCLUSION [None]
